FAERS Safety Report 9482284 (Version 2)
Quarter: 2013Q3

REPORT INFORMATION
  Report Type: Spontaneous
  Country: US (occurrence: US)
  Receive Date: 20130828
  Receipt Date: 20130913
  Transmission Date: 20140515
  Serious: No
  Sender: FDA-Public Use
  Company Number: US-009507513-1308USA009127

PATIENT
  Age: 73 Year
  Sex: Female

DRUGS (9)
  1. FOSAMAX [Suspect]
     Indication: OSTEOPOROSIS
     Dosage: 70 MG, QW
     Route: 048
     Dates: start: 201304, end: 201308
  2. VOLTAREN [Suspect]
     Indication: OSTEOPOROSIS
  3. VOLTAREN [Suspect]
     Indication: FIBROMYALGIA
  4. TYLENOL [Suspect]
     Indication: OSTEOPOROSIS
  5. TYLENOL [Suspect]
     Indication: FIBROMYALGIA
  6. ARTHROTEC [Suspect]
     Indication: OSTEOPOROSIS
  7. ARTHROTEC [Suspect]
     Indication: FIBROMYALGIA
  8. PLAVIX [Concomitant]
  9. FLEXORIL [Concomitant]

REACTIONS (4)
  - Ageusia [Recovering/Resolving]
  - Drug ineffective [Unknown]
  - Myalgia [Recovering/Resolving]
  - Bone pain [Recovering/Resolving]
